FAERS Safety Report 10602771 (Version 2)
Quarter: 2014Q4

REPORT INFORMATION
  Report Type: Spontaneous
  Country: US (occurrence: US)
  Receive Date: 20141124
  Receipt Date: 20141124
  Transmission Date: 20150529
  Serious: No
  Sender: FDA-Public Use
  Company Number: US-NOVEN-14US010131

PATIENT
  Age: 58 Year
  Sex: Female

DRUGS (2)
  1. PROGESTERONE. [Concomitant]
     Active Substance: PROGESTERONE
     Indication: PRODUCT USED FOR UNKNOWN INDICATION
  2. MINIVELLE [Suspect]
     Active Substance: ESTRADIOL
     Indication: HOT FLUSH
     Dosage: 0.0375MG/DAY, UNK
     Route: 062
     Dates: start: 2013, end: 201406

REACTIONS (6)
  - Stress [Recovered/Resolved]
  - Blood oestrogen increased [Recovered/Resolved]
  - Tremor [Recovered/Resolved]
  - Breast tenderness [Not Recovered/Not Resolved]
  - Abdominal distension [Recovered/Resolved]
  - Blood oestrogen increased [Recovered/Resolved]

NARRATIVE: CASE EVENT DATE: 201405
